FAERS Safety Report 4638168-4 (Version None)
Quarter: 2005Q2

REPORT INFORMATION
  Report Type: 
  Country: None (occurrence: None)
  Receive Date: 20050418
  Receipt Date: 20050406
  Transmission Date: 20051028
  Serious: Yes (Hospitalization, Other)
  Sender: FDA-Public Use
  Company Number: 10775

PATIENT
  Age: 42 Year
  Sex: Male

DRUGS (7)
  1. FLUOROURACIL [Suspect]
     Indication: COLON CANCER STAGE III
     Dosage: 400 MG/M2 PER_CYCLE IV
     Route: 042
     Dates: start: 20040621
  2. FLUOROURACIL [Suspect]
     Indication: COLON CANCER STAGE III
     Dosage: 2400 MG/M2 PER_CYCLE IV
     Route: 042
     Dates: start: 20040621
  3. IRINOTECAN HCL [Suspect]
     Indication: COLON CANCER STAGE III
     Dosage: 180 MG/M2 PER_CYCLE IV
     Route: 042
  4. LEUCOVORIN CALCIUM [Suspect]
     Indication: COLON CANCER STAGE III
     Dosage: 400 MG/M2 PER_CYCLE IV
     Route: 042
     Dates: start: 20040621
  5. DEXAMETHASONE [Suspect]
  6. OXALIPLATIN [Suspect]
     Indication: COLON CANCER STAGE III
     Dosage: 85 MG/M2 PER_CYCLE IV
     Route: 042
     Dates: start: 20040621, end: 20040803
  7. ALOXI [Concomitant]

REACTIONS (11)
  - BLOOD AMYLASE INCREASED [None]
  - BLOOD PHOSPHORUS DECREASED [None]
  - DIABETES MELLITUS [None]
  - DIABETIC KETOACIDOSIS [None]
  - DYSPEPSIA [None]
  - LIPASE INCREASED [None]
  - MALAISE [None]
  - PCO2 DECREASED [None]
  - PROCTITIS [None]
  - VISION BLURRED [None]
  - WEIGHT DECREASED [None]
